FAERS Safety Report 20955877 (Version 1)
Quarter: 2022Q2

REPORT INFORMATION
  Report Type: Spontaneous
  Country: US (occurrence: US)
  Receive Date: 20220614
  Receipt Date: 20220614
  Transmission Date: 20220720
  Serious: Yes (Hospitalization)
  Sender: FDA-Public Use
  Company Number: US-BRISTOL-MYERS SQUIBB COMPANY-2022-052027

PATIENT
  Age: 68 Year
  Sex: Female
  Weight: 70.76 kg

DRUGS (1)
  1. REVLIMID [Suspect]
     Active Substance: LENALIDOMIDE
     Indication: Plasma cell myeloma
     Dosage: FREQUENCY 3WEEKS 1 WEEK OFF
     Route: 048
     Dates: start: 20220501

REACTIONS (5)
  - Anaemia [Unknown]
  - Back pain [Unknown]
  - Diarrhoea [Unknown]
  - Tremor [Unknown]
  - Asthenia [Unknown]
